FAERS Safety Report 17067075 (Version 1)
Quarter: 2019Q4

REPORT INFORMATION
  Report Type: Spontaneous
  Country: US (occurrence: US)
  Receive Date: 20191025
  Receipt Date: 20191025
  Transmission Date: 20200122
  Serious: No
  Sender: FDA-Public Use
  Company Number: None

PATIENT
  Sex: Male

DRUGS (1)
  1. GAMUNEX-C [Suspect]
     Active Substance: HUMAN IMMUNOGLOBULIN G
     Indication: IMMUNODEFICIENCY COMMON VARIABLE
     Route: 042
     Dates: start: 20190820

REACTIONS (7)
  - Parosmia [None]
  - Headache [None]
  - Pain in extremity [None]
  - Eye pain [None]
  - Musculoskeletal chest pain [None]
  - Arthralgia [None]
  - Tenderness [None]
